FAERS Safety Report 5557096-3 (Version None)
Quarter: 2007Q4

REPORT INFORMATION
  Report Type: 
  Country: None (occurrence: None)
  Receive Date: 20071211
  Receipt Date: 20071127
  Transmission Date: 20080405
  Serious: Yes (Other)
  Sender: FDA-Public Use
  Company Number: 021387

PATIENT
  Age: 45 Year
  Sex: Female

DRUGS (1)
  1. NORDETTE-28 [Suspect]
     Indication: ORAL CONTRACEPTION
     Dosage: ORAL
     Route: 048

REACTIONS (3)
  - CONDITION AGGRAVATED [None]
  - MYOSITIS [None]
  - SYSTEMIC LUPUS ERYTHEMATOSUS [None]
